FAERS Safety Report 6377454-7 (Version None)
Quarter: 2009Q3

REPORT INFORMATION
  Report Type: 
  Country: None (occurrence: None)
  Receive Date: 20090925
  Receipt Date: 20090914
  Transmission Date: 20100115
  Serious: Yes (Hospitalization, Other)
  Sender: FDA-Public Use
  Company Number: US-ELI_LILLY_AND_COMPANY-US200909001743

PATIENT
  Age: 70 Year
  Sex: Female

DRUGS (2)
  1. FORTEO [Suspect]
     Indication: OSTEOPOROSIS
     Dosage: UNK, UNK
     Dates: end: 20090101
  2. FORTEO [Suspect]
     Dates: start: 20090101

REACTIONS (4)
  - ANXIETY [None]
  - DECREASED APPETITE [None]
  - HAEMORRHAGE [None]
  - OESOPHAGITIS [None]
